FAERS Safety Report 23706542 (Version 1)
Quarter: 2024Q2

REPORT INFORMATION
  Report Type: Spontaneous
  Country: ES (occurrence: ES)
  Receive Date: 20240404
  Receipt Date: 20240404
  Transmission Date: 20240716
  Serious: Yes (Hospitalization, Other)
  Sender: FDA-Public Use
  Company Number: None

PATIENT
  Age: 77 Year
  Sex: Female
  Weight: 71 kg

DRUGS (3)
  1. DASATINIB [Suspect]
     Active Substance: DASATINIB
     Indication: Chronic myeloid leukaemia
     Route: 048
     Dates: start: 20240222, end: 20240306
  2. HYDREA [Concomitant]
     Active Substance: HYDROXYUREA
     Indication: Hyperuricaemia
     Route: 048
     Dates: start: 20240215, end: 20240222
  3. ALLOPURINOL [Concomitant]
     Active Substance: ALLOPURINOL
     Indication: Hyperuricaemia
     Route: 048
     Dates: start: 20240216, end: 20240307

REACTIONS (4)
  - Rash [Recovering/Resolving]
  - Acute kidney injury [Recovering/Resolving]
  - Palatal oedema [Recovering/Resolving]
  - Off label use [Unknown]

NARRATIVE: CASE EVENT DATE: 20240304
